FAERS Safety Report 9361805 (Version 1)
Quarter: 2013Q2

REPORT INFORMATION
  Report Type: Spontaneous
  Country: US (occurrence: US)
  Receive Date: 20130621
  Receipt Date: 20130621
  Transmission Date: 20140414
  Serious: Yes (Hospitalization)
  Sender: FDA-Public Use
  Company Number: US-JNJFOC-20130608639

PATIENT
  Age: 81 Year
  Sex: Male

DRUGS (9)
  1. XARELTO [Suspect]
     Indication: PRODUCT USED FOR UNKNOWN INDICATION
     Route: 048
     Dates: start: 20130531
  2. ASPIRIN [Concomitant]
     Indication: PRODUCT USED FOR UNKNOWN INDICATION
     Route: 048
  3. FENOFIBRATE [Concomitant]
     Route: 048
  4. ISOSORBIDE MONONITRATE [Concomitant]
     Route: 048
  5. METOPROLOL TARTRATE [Concomitant]
     Route: 048
  6. NITROSTAT [Concomitant]
     Indication: CHEST PAIN
     Dosage: AS NEEDED
     Route: 060
  7. PANTOPRAZOLE [Concomitant]
     Route: 048
  8. RANOLAZINE [Concomitant]
     Route: 048
  9. ROSUVASTATIN [Concomitant]
     Route: 048

REACTIONS (1)
  - Cholecystitis [Unknown]
